FAERS Safety Report 15694616 (Version 2)
Quarter: 2018Q4

REPORT INFORMATION
  Report Type: Spontaneous
  Country: US (occurrence: US)
  Receive Date: 20181206
  Receipt Date: 20181212
  Transmission Date: 20190205
  Serious: Yes (Other)
  Sender: FDA-Public Use
  Company Number: US-AMGEN-USASP2018170235

PATIENT
  Age: 73 Year
  Sex: Female
  Weight: 63.13 kg

DRUGS (13)
  1. ADVAIR HFA [Concomitant]
     Active Substance: FLUTICASONE PROPIONATE\SALMETEROL XINAFOATE
     Dosage: 250-50 MCG/DOSE
  2. IBRANCE [Suspect]
     Active Substance: PALBOCICLIB
     Indication: PRODUCT USED FOR UNKNOWN INDICATION
     Dosage: UNK
     Route: 065
     Dates: start: 20181201
  3. ALPRAZOLAM. [Concomitant]
     Active Substance: ALPRAZOLAM
     Dosage: 0.5 MG, AS NECESSARY
     Route: 048
  4. FASLODEX [Concomitant]
     Active Substance: FULVESTRANT
     Dosage: UNK
     Dates: start: 201811
  5. XGEVA [Suspect]
     Active Substance: DENOSUMAB
     Dosage: 120 MG, Q2MO
     Route: 058
     Dates: start: 201803, end: 20180805
  6. ARIMIDEX [Concomitant]
     Active Substance: ANASTROZOLE
     Indication: BREAST CANCER METASTATIC
     Dosage: 1 MG, QD
     Dates: start: 2014, end: 2018
  7. ALBUTEROL SULFATE. [Concomitant]
     Active Substance: ALBUTEROL SULFATE
     Dosage: 108 MUG (2 PUFFS OF 108 (90 BASE) MCG/ACT), AS NECESSARY
     Route: 055
  8. ANASTROZOLE. [Concomitant]
     Active Substance: ANASTROZOLE
     Dosage: 1 MG, QD
     Route: 048
  9. LORAZEPAM. [Concomitant]
     Active Substance: LORAZEPAM
     Dosage: UNK UNK, AS NECESSARY
     Route: 048
  10. SPIRIVA [Concomitant]
     Active Substance: TIOTROPIUM BROMIDE MONOHYDRATE
     Dosage: 18 MUG (1 PUFF OF CAPSULE INHALATION), QD
     Route: 055
  11. ATORVASTATIN CALCIUM. [Concomitant]
     Active Substance: ATORVASTATIN CALCIUM
     Dosage: 40 MG, QD
     Route: 048
  12. XGEVA [Suspect]
     Active Substance: DENOSUMAB
     Indication: BREAST CANCER METASTATIC
     Dosage: 120 MG, Q2MO
     Route: 058
     Dates: start: 2014, end: 201710
  13. CALCIUM + D3 [Concomitant]
     Active Substance: CALCIUM\CHOLECALCIFEROL
     Dosage: (600-200MG), QD
     Route: 048

REACTIONS (7)
  - Iron deficiency anaemia [Recovered/Resolved]
  - Tooth infection [Unknown]
  - Pyrexia [Unknown]
  - Osteonecrosis of jaw [Recovering/Resolving]
  - Dental care [Unknown]
  - Oral herpes [Unknown]
  - Tooth extraction [Unknown]

NARRATIVE: CASE EVENT DATE: 2016
